FAERS Safety Report 20478943 (Version 2)
Quarter: 2022Q3

REPORT INFORMATION
  Report Type: Report from Study
  Country: TH (occurrence: TH)
  Receive Date: 20220216
  Receipt Date: 20220902
  Transmission Date: 20221027
  Serious: Yes (Other)
  Sender: FDA-Public Use
  Company Number: TH-NOVARTISPH-NVSC2022TH034540

PATIENT
  Age: 50 Year
  Sex: Female

DRUGS (2)
  1. KISQALI [Suspect]
     Active Substance: RIBOCICLIB
     Indication: Breast cancer metastatic
     Dosage: 3 DOSAGE FORM
     Route: 048
  2. KISQALI [Suspect]
     Active Substance: RIBOCICLIB
     Dosage: 2 DOSAGE FORM
     Route: 048
     Dates: end: 202207

REACTIONS (6)
  - Choking [Unknown]
  - Skin exfoliation [Unknown]
  - Blood test abnormal [Unknown]
  - Face oedema [Unknown]
  - Hypoaesthesia oral [Unknown]
  - Rash [Unknown]

NARRATIVE: CASE EVENT DATE: 20220701
